FAERS Safety Report 5028924-5 (Version None)
Quarter: 2006Q2

REPORT INFORMATION
  Report Type: 
  Country: None (occurrence: None)
  Receive Date: 20060619
  Receipt Date: 20060616
  Transmission Date: 20061013
  Serious: Yes (Hospitalization)
  Sender: FDA-Public Use
  Company Number: FR-GLAXOSMITHKLINE-B0427676A

PATIENT
  Age: 83 Year
  Sex: Male

DRUGS (4)
  1. CLAMOXYL [Suspect]
     Dosage: 1UNIT CUMULATIVE DOSE
     Route: 048
     Dates: start: 20060531
  2. SURGAM [Concomitant]
     Dosage: 1UNIT CUMULATIVE DOSE
     Route: 048
     Dates: start: 20060531
  3. SECTRAL [Concomitant]
     Route: 065
  4. ASPIRIN [Concomitant]
     Route: 065

REACTIONS (2)
  - PURPURA [None]
  - RASH MACULAR [None]
